FAERS Safety Report 7781237-0 (Version None)
Quarter: 2011Q3

REPORT INFORMATION
  Report Type: 
  Country: None (occurrence: None)
  Receive Date: 20110923
  Receipt Date: 20110914
  Transmission Date: 20111222
  Serious: Yes (Life-Threatening)
  Sender: FDA-Public Use
  Company Number: 1000023691

PATIENT
  Age: 75 Year
  Sex: Male

DRUGS (4)
  1. COUMADIN [Suspect]
     Indication: ANTICOAGULANT THERAPY
  2. ANTIHYPERTENSIVES (ANTIHYPERTENSIVES) [Suspect]
  3. ROFLUMILAST (ROFLUMILAST) (500 MICROGRAM, TABLETS) [Suspect]
     Dosage: 500 MCG
  4. ATROVENT [Suspect]
     Indication: BRONCHIAL DISORDER

REACTIONS (2)
  - ILLUSION [None]
  - POTENTIATING DRUG INTERACTION [None]
